FAERS Safety Report 9867408 (Version 1)
Quarter: 2014Q1

REPORT INFORMATION
  Report Type: Spontaneous
  Country: US (occurrence: US)
  Receive Date: 20140204
  Receipt Date: 20140204
  Transmission Date: 20141002
  Serious: Yes (Hospitalization)
  Sender: FDA-Public Use
  Company Number: US-ROXANE LABORATORIES, INC.-2014-RO-00132RO

PATIENT
  Age: 36 Year
  Sex: Female

DRUGS (9)
  1. MIDAZOLAM [Suspect]
     Indication: AGITATION
  2. PROPOFOL [Suspect]
     Indication: ANAESTHESIA
     Route: 042
  3. LIDOCAINE [Suspect]
     Indication: ANAESTHESIA
     Route: 042
  4. GLYCOPYRROLATE [Suspect]
     Indication: ANAESTHESIA
     Route: 042
  5. PHENYLEPHRINE [Suspect]
     Indication: BLOOD PRESSURE DECREASED
     Route: 042
  6. MULTIVITAMIN [Concomitant]
  7. VITAMIN B12 [Concomitant]
     Route: 060
  8. CALCIUM CITRATE [Concomitant]
  9. URSODIOL [Concomitant]
     Indication: NAUSEA

REACTIONS (2)
  - Confusional state [Recovered/Resolved]
  - Amnesia [Unknown]
